FAERS Safety Report 22065098 (Version 1)
Quarter: 2023Q1

REPORT INFORMATION
  Report Type: Report from Study
  Country: CN (occurrence: CN)
  Receive Date: 20230306
  Receipt Date: 20230306
  Transmission Date: 20230417
  Serious: Yes (Life-Threatening, Hospitalization, Other)
  Sender: FDA-Public Use
  Company Number: CN-JNJFOC-20210918104

PATIENT
  Age: 57 Year
  Sex: Male
  Weight: 91 kg

DRUGS (4)
  1. ERDAFITINIB [Suspect]
     Active Substance: ERDAFITINIB
     Indication: Neoplasm
     Route: 048
     Dates: start: 20210126, end: 20210208
  2. ERDAFITINIB [Suspect]
     Active Substance: ERDAFITINIB
     Route: 048
     Dates: start: 20210209, end: 20210714
  3. ERDAFITINIB [Suspect]
     Active Substance: ERDAFITINIB
     Route: 048
     Dates: start: 20210729, end: 20210902
  4. ERDAFITINIB [Suspect]
     Active Substance: ERDAFITINIB
     Route: 048
     Dates: start: 20210926

REACTIONS (2)
  - Hyponatraemia [Recovering/Resolving]
  - Anaphylactic shock [Recovered/Resolved]

NARRATIVE: CASE EVENT DATE: 20210903
